FAERS Safety Report 11498572 (Version 1)
Quarter: 2015Q3

REPORT INFORMATION
  Report Type: Report from Study
  Country: GR (occurrence: GR)
  Receive Date: 20150911
  Receipt Date: 20150911
  Transmission Date: 20151125
  Serious: Yes (Hospitalization)
  Sender: FDA-Public Use
  Company Number: GR-ABBVIE-15K-066-1460960-00

PATIENT
  Age: 10 Year
  Sex: Female

DRUGS (1)
  1. HUMIRA [Suspect]
     Active Substance: ADALIMUMAB
     Indication: JUVENILE IDIOPATHIC ARTHRITIS
     Route: 058
     Dates: start: 20141025, end: 201509

REACTIONS (2)
  - Adnexal torsion [Recovering/Resolving]
  - Ovarian rupture [Recovering/Resolving]

NARRATIVE: CASE EVENT DATE: 20150904
